FAERS Safety Report 25341357 (Version 1)
Quarter: 2025Q2

REPORT INFORMATION
  Report Type: Spontaneous
  Country: US (occurrence: US)
  Receive Date: 20250521
  Receipt Date: 20250521
  Transmission Date: 20250716
  Serious: Yes (Life-Threatening, Hospitalization, Other)
  Sender: AUROBINDO
  Company Number: US-MLMSERVICE-20250430-PI495462-00129-1

PATIENT
  Age: 69 Year
  Sex: Male

DRUGS (3)
  1. WARFARIN [Interacting]
     Active Substance: WARFARIN
     Indication: Atrial fibrillation
     Route: 065
  2. WARFARIN [Interacting]
     Active Substance: WARFARIN
     Route: 065
  3. DOXYCYCLINE [Interacting]
     Active Substance: DOXYCYCLINE
     Indication: Pneumonia
     Dosage: 100 MILLIGRAM, TWO TIMES A DAY
     Route: 065

REACTIONS (4)
  - Abdominal wall haematoma [Recovering/Resolving]
  - Atrial fibrillation [Recovering/Resolving]
  - Pelvic haematoma [Recovering/Resolving]
  - Drug interaction [Recovering/Resolving]
